FAERS Safety Report 10883682 (Version 3)
Quarter: 2015Q2

REPORT INFORMATION
  Report Type: Spontaneous
  Country: US (occurrence: US)
  Receive Date: 20150303
  Receipt Date: 20150401
  Transmission Date: 20150821
  Serious: Yes (Life-Threatening, Hospitalization, Other)
  Sender: FDA-Public Use
  Company Number: US-009507513-1502USA010777

PATIENT
  Age: 74 Year
  Sex: Female
  Weight: 67 kg

DRUGS (9)
  1. METHOTREXATE [Suspect]
     Active Substance: METHOTREXATE
     Indication: RHEUMATOID ARTHRITIS
     Dosage: 5 MG PILL BY MOUTH MONDAY, WEDNESDAY, AND FRIDAY
     Route: 048
     Dates: start: 1989
  2. ENBREL [Suspect]
     Active Substance: ETANERCEPT
     Indication: RHEUMATOID ARTHRITIS
     Dosage: UNKNOWN DOSE ONCE A WEEK
     Route: 030
     Dates: end: 2010
  3. PENICILLIN (UNSPECIFIED) [Suspect]
     Active Substance: PENICILLIN
     Dosage: UNK
     Dates: start: 2011
  4. CLINORIL [Suspect]
     Active Substance: SULINDAC
     Indication: RHEUMATOID ARTHRITIS
     Dosage: 5 MG TABLET DAILY
     Route: 048
     Dates: end: 20100320
  5. GOLD [Suspect]
     Active Substance: GOLD
     Dosage: UNK
     Dates: start: 1989
  6. ERYTHROMYCIN. [Suspect]
     Active Substance: ERYTHROMYCIN
     Indication: OROPHARYNGEAL PAIN
     Dosage: UNK
     Dates: start: 2011, end: 2011
  7. METHOTREXATE [Suspect]
     Active Substance: METHOTREXATE
     Dosage: 5 MG PILL BY MOUTH MONDAY THROUGH FRIDAY
     Route: 048
     Dates: end: 20140331
  8. MORPHINE [Suspect]
     Active Substance: MORPHINE
     Dosage: UNK
     Dates: start: 200208
  9. ZITHROMAX [Suspect]
     Active Substance: AZITHROMYCIN DIHYDRATE
     Indication: OROPHARYNGEAL PAIN
     Dosage: UNK
     Dates: start: 2011, end: 2011

REACTIONS (28)
  - Diverticulitis [Recovered/Resolved with Sequelae]
  - Vomiting [Unknown]
  - Large intestine perforation [Unknown]
  - Rash vesicular [Recovered/Resolved]
  - Loss of consciousness [Unknown]
  - Carpal tunnel syndrome [Unknown]
  - Large intestinal obstruction [Unknown]
  - Mastoid disorder [Recovered/Resolved]
  - Knee operation [Unknown]
  - Gastrointestinal disorder [Unknown]
  - Colectomy [Unknown]
  - Herpes zoster [Recovered/Resolved with Sequelae]
  - Drug ineffective [Unknown]
  - Joint injury [Unknown]
  - Abdominal distension [Unknown]
  - Diarrhoea [Unknown]
  - Oropharyngeal pain [Unknown]
  - Skin ulcer [Recovered/Resolved]
  - Rash [Recovered/Resolved]
  - Adverse event [Recovered/Resolved]
  - Drug hypersensitivity [Unknown]
  - Clostridium difficile infection [Recovering/Resolving]
  - Throat tightness [Unknown]
  - Drug hypersensitivity [Recovered/Resolved]
  - Influenza [Unknown]
  - Miliaria [Unknown]
  - Tendonitis [Unknown]
  - Road traffic accident [Unknown]

NARRATIVE: CASE EVENT DATE: 1989
